FAERS Safety Report 18689510 (Version 2)
Quarter: 2021Q1

REPORT INFORMATION
  Report Type: Spontaneous
  Country: IT (occurrence: IT)
  Receive Date: 20201231
  Receipt Date: 20210111
  Transmission Date: 20210419
  Serious: Yes (Hospitalization, Other)
  Sender: FDA-Public Use
  Company Number: IT-OTSUKA-2020_033130

PATIENT
  Age: 45 Year
  Sex: Female

DRUGS (3)
  1. TEGRETOL [Suspect]
     Active Substance: CARBAMAZEPINE
     Indication: PRODUCT USED FOR UNKNOWN INDICATION
     Dosage: 2000 MG, TOTAL
     Route: 048
     Dates: start: 20201220, end: 20201220
  2. TAVOR (LORAZEPAM) [Suspect]
     Active Substance: LORAZEPAM
     Indication: PRODUCT USED FOR UNKNOWN INDICATION
     Dosage: 20 MG, TOTAL
     Route: 048
     Dates: start: 20201220, end: 20201220
  3. ABILIFY [Suspect]
     Active Substance: ARIPIPRAZOLE
     Indication: PRODUCT USED FOR UNKNOWN INDICATION
     Dosage: 10 MG, TOTAL
     Route: 048
     Dates: start: 20201220, end: 20201220

REACTIONS (7)
  - Bradykinesia [Unknown]
  - Depressed level of consciousness [Recovering/Resolving]
  - Drug level increased [Recovering/Resolving]
  - Diplopia [Recovering/Resolving]
  - Abdominal pain [Recovering/Resolving]
  - Suicide attempt [Recovering/Resolving]
  - Overdose [Unknown]

NARRATIVE: CASE EVENT DATE: 20201220
